FAERS Safety Report 8818562 (Version 2)
Quarter: 2013Q2

REPORT INFORMATION
  Report Type: Spontaneous
  Country: DE (occurrence: DE)
  Receive Date: 20121001
  Receipt Date: 20130621
  Transmission Date: 20140414
  Serious: Yes (Death, Life-Threatening, Hospitalization)
  Sender: FDA-Public Use
  Company Number: DE-ASTRAZENECA-2012SE32989

PATIENT
  Age: 26441 Day
  Sex: Female
  Weight: 70 kg

DRUGS (15)
  1. BRILIQUE [Suspect]
     Indication: ACUTE MYOCARDIAL INFARCTION
     Route: 048
     Dates: start: 20120414
  2. PANTOPRAZOLE [Concomitant]
     Route: 048
  3. ASS 100 [Concomitant]
     Route: 048
  4. BISOPROLOL [Concomitant]
     Route: 048
  5. SIMVASTATIN [Concomitant]
     Route: 048
  6. TOREM [Concomitant]
     Route: 048
  7. NORSPAN [Concomitant]
  8. NOVALGIN [Concomitant]
     Route: 048
  9. LITALIR [Concomitant]
     Route: 048
  10. OPIPRAMOL [Concomitant]
     Route: 048
  11. LISKANTIN [Concomitant]
     Route: 048
  12. NAFTILONG [Concomitant]
     Route: 048
  13. RAMIPRIL [Concomitant]
     Route: 048
  14. ZOLPIDEM [Concomitant]
     Route: 048
  15. CIPROFLOXACIN [Concomitant]
     Route: 042

REACTIONS (6)
  - Thrombosis in device [Fatal]
  - Cardiac failure [Fatal]
  - Shock [Unknown]
  - White blood cell count increased [Unknown]
  - Platelet count increased [Unknown]
  - Post procedural haematoma [Unknown]
